FAERS Safety Report 24096862 (Version 1)
Quarter: 2024Q3

REPORT INFORMATION
  Report Type: Spontaneous
  Country: US (occurrence: US)
  Receive Date: 20240716
  Receipt Date: 20240716
  Transmission Date: 20241016
  Serious: No
  Sender: GRIFOLS
  Company Number: US-IGSA-BIG0025214

PATIENT
  Age: 60 Year
  Sex: Female

DRUGS (9)
  1. GAMUNEX-C [Suspect]
     Active Substance: HUMAN IMMUNOGLOBULIN G
     Indication: Immunodeficiency common variable
     Dosage: 10 GRAM, UNKNOWN
     Route: 042
  2. TYMLOS [Concomitant]
     Active Substance: ABALOPARATIDE
     Indication: Osteoporosis
     Dosage: 40 MICROGRAM, QD
     Route: 058
     Dates: start: 20230330, end: 20230411
  3. TYMLOS [Concomitant]
     Active Substance: ABALOPARATIDE
     Indication: Off label use
     Dosage: 80 MICROGRAM, QD
     Route: 058
  4. MINERALS\VITAMINS [Concomitant]
     Active Substance: MINERALS\VITAMINS
  5. PREPARATION H [HYDROCORTISONE] [Concomitant]
  6. MIRALAX [Concomitant]
     Active Substance: POLYETHYLENE GLYCOL 3350
  7. COLLAGENASE [Concomitant]
     Active Substance: COLLAGENASE CLOSTRIDIUM HISTOLYTICUM
  8. VITAMIN D3 [Concomitant]
     Active Substance: CHOLECALCIFEROL
  9. RISEDRONATE SODIUM [Concomitant]
     Active Substance: RISEDRONATE SODIUM

REACTIONS (5)
  - Infusion site pain [Unknown]
  - Rash [Unknown]
  - Rash erythematous [Unknown]
  - Restlessness [Unknown]
  - Insomnia [Unknown]

NARRATIVE: CASE EVENT DATE: 20230617
